FAERS Safety Report 21523904 (Version 1)
Quarter: 2022Q4

REPORT INFORMATION
  Report Type: Report from Study
  Country: US (occurrence: US)
  Receive Date: 20221029
  Receipt Date: 20221029
  Transmission Date: 20230113
  Serious: No
  Sender: FDA-Public Use
  Company Number: US-ABBVIE-4135885

PATIENT
  Sex: Male

DRUGS (5)
  1. HUMIRA [Suspect]
     Active Substance: ADALIMUMAB
     Indication: Crohn^s disease
     Dosage: FORM STRENGTH-40 MILLIGRAM, FIRST ADMIN DATE-29 JUL 2022, LAST ADMIN DATE-2022
     Route: 058
  2. HUMIRA [Suspect]
     Active Substance: ADALIMUMAB
     Dosage: FIRST ADMIN DATE-2022
     Route: 058
  3. United States of America [Concomitant]
     Indication: COVID-19 immunisation
     Dosage: FIRST DOSE?1 IN ONCE
     Route: 030
  4. United States of America [Concomitant]
     Indication: COVID-19 immunisation
     Dosage: SECOND DOSE?1 IN ONCE
     Route: 030
  5. United States of America [Concomitant]
     Indication: COVID-19 immunisation
     Dosage: THIRD DOSE?1 IN ONCE
     Route: 030
     Dates: start: 20210121, end: 20210121

REACTIONS (5)
  - Crohn^s disease [Recovered/Resolved]
  - Crohn^s disease [Recovering/Resolving]
  - Frequent bowel movements [Unknown]
  - Asthenia [Unknown]
  - Arthralgia [Unknown]

NARRATIVE: CASE EVENT DATE: 20220101
